FAERS Safety Report 8786147 (Version 1)
Quarter: 2012Q4

REPORT INFORMATION
  Report Type: Report from Study
  Country: US (occurrence: US)
  Receive Date: 20120914
  Receipt Date: 20120914
  Transmission Date: 20130627
  Serious: No
  Sender: FDA-Public Use
  Company Number: US-VERTEX PHARMACEUTICAL INC.-AE-2012-011422

PATIENT
  Sex: Male

DRUGS (11)
  1. INCIVEK [Suspect]
     Indication: HEPATITIS C
     Route: 048
  2. RIBAVIRIN [Concomitant]
     Indication: HEPATITIS C
  3. PEGASYS [Concomitant]
     Indication: HEPATITIS C
  4. TRIAZOLAM [Concomitant]
  5. CARISOPRODOL [Concomitant]
  6. DIAZEPAM [Concomitant]
  7. DIPHEN/ATROPINE [Concomitant]
  8. LEVOTHYROXINE [Concomitant]
  9. HYDROCO/APAP [Concomitant]
  10. DONEPEZIL [Concomitant]
  11. NITROQUICK [Concomitant]

REACTIONS (2)
  - Alopecia [Unknown]
  - Irritability [Unknown]
